FAERS Safety Report 19029293 (Version 4)
Quarter: 2023Q2

REPORT INFORMATION
  Report Type: Report from Study
  Country: US (occurrence: US)
  Receive Date: 20210318
  Receipt Date: 20230518
  Transmission Date: 20230722
  Serious: Yes (Hospitalization, Other)
  Sender: FDA-Public Use
  Company Number: US-JAZZ-2021-US-004724

PATIENT
  Sex: Female

DRUGS (34)
  1. XYREM [Suspect]
     Active Substance: SODIUM OXYBATE
     Indication: Narcolepsy
     Dosage: 2.25 GRAM, BID
     Route: 048
     Dates: start: 201411, end: 201412
  2. XYREM [Suspect]
     Active Substance: SODIUM OXYBATE
     Indication: Cataplexy
     Dosage: DOSE ADJUSTMENT
     Route: 048
     Dates: start: 201412, end: 201412
  3. XYREM [Suspect]
     Active Substance: SODIUM OXYBATE
     Indication: Somnolence
     Dosage: 4.5 GRAM, BID
     Route: 048
     Dates: start: 201412
  4. MONTELUKAST [Concomitant]
     Active Substance: MONTELUKAST SODIUM
  5. VENTOLIN [Concomitant]
     Active Substance: ALBUTEROL SULFATE
  6. LIPITOR [Concomitant]
     Active Substance: ATORVASTATIN CALCIUM
  7. ADENOSINE [Concomitant]
     Active Substance: ADENOSINE
  8. HYDROXYCHLOROQUINE [Concomitant]
     Active Substance: HYDROXYCHLOROQUINE
  9. OXYCODONE [Concomitant]
     Active Substance: OXYCODONE
  10. SINGULAIR [Concomitant]
     Active Substance: MONTELUKAST SODIUM
  11. NUVIGIL [Concomitant]
     Active Substance: ARMODAFINIL
  12. DIETARY SUPPLEMENT\HERBALS [Concomitant]
     Active Substance: DIETARY SUPPLEMENT\HERBALS
  13. IBUPROFEN [Concomitant]
     Active Substance: IBUPROFEN
  14. NORCO [Concomitant]
     Active Substance: ACETAMINOPHEN\HYDROCODONE BITARTRATE
  15. FUROSEMIDE SODIUM [Concomitant]
     Active Substance: FUROSEMIDE SODIUM
     Dosage: UNK
     Dates: start: 20141125
  16. LEVOTHYROXINE [Concomitant]
     Active Substance: LEVOTHYROXINE
     Dosage: UNK
     Dates: start: 20141125
  17. VALTREX [Concomitant]
     Active Substance: VALACYCLOVIR HYDROCHLORIDE
     Dosage: CAPLET
     Dates: start: 20141125
  18. FLUOROMETHOLONE [Concomitant]
     Active Substance: FLUOROMETHOLONE
     Dosage: DROPS
     Dates: start: 20141125
  19. TRIAMCINOLONE ACETONIDE [Concomitant]
     Active Substance: TRIAMCINOLONE ACETONIDE
     Dosage: UNK
     Dates: start: 20141125
  20. CICLOPIROX [CICLOPIROX OLAMINE] [Concomitant]
     Dosage: UNK
     Dates: start: 20141125
  21. KENALOG [Concomitant]
     Active Substance: TRIAMCINOLONE ACETONIDE
     Dosage: AEROSOL SPRAY
     Dates: start: 20141125
  22. HALOBETASOL PROP [Concomitant]
     Dosage: UNK
     Dates: start: 20141125
  23. HYDROCORTISONE [Concomitant]
     Active Substance: HYDROCORTISONE
     Dosage: UNK
     Dates: start: 20141125
  24. HYDROCHLOROTHIAZIDE\LOSARTAN POTASSIUM [Concomitant]
     Active Substance: HYDROCHLOROTHIAZIDE\LOSARTAN POTASSIUM
     Dosage: UNK
     Dates: start: 20150710
  25. NASACORT [Concomitant]
     Active Substance: TRIAMCINOLONE ACETONIDE
     Dosage: NASAL SPRAY
     Dates: start: 20150918
  26. ATROVENT [Concomitant]
     Active Substance: IPRATROPIUM BROMIDE
     Dosage: SPRAY
     Dates: start: 20150918
  27. VITAMIN D3 [Concomitant]
     Active Substance: CHOLECALCIFEROL
     Dosage: 1000 UNIT
  28. PROBIOTICS NOS [Concomitant]
     Active Substance: PROBIOTICS NOS
     Dosage: ACIDOPHILUS BEADS
     Dates: start: 20151020
  29. PREGABALIN [Concomitant]
     Active Substance: PREGABALIN
     Dosage: UNK
     Dates: start: 20221101
  30. METFORMIN HYDROCHLORIDE [Concomitant]
     Active Substance: METFORMIN HYDROCHLORIDE
     Dosage: UNK
     Dates: start: 20230301
  31. VENLAFAXINE HCL [Concomitant]
     Active Substance: VENLAFAXINE HYDROCHLORIDE
     Dosage: UNK
     Dates: start: 20160128
  32. MOMETASONE FUROATE [Concomitant]
     Active Substance: MOMETASONE FUROATE
     Dosage: UNK
     Dates: start: 20151020
  33. MACULAR [Concomitant]
     Dosage: UNK
     Dates: start: 20151020
  34. MAGNESIUM OXIDE [Concomitant]
     Active Substance: MAGNESIUM OXIDE
     Dosage: UNK
     Dates: start: 20151020

REACTIONS (11)
  - Hospitalisation [Unknown]
  - Cataract [Unknown]
  - Bursitis [Unknown]
  - Dysplastic naevus [Unknown]
  - Obstructive sleep apnoea syndrome [Unknown]
  - Gastrooesophageal reflux disease [Unknown]
  - Mass [Unknown]
  - Weight decreased [Unknown]
  - Memory impairment [Not Recovered/Not Resolved]
  - Depression [Unknown]
  - Hypersensitivity [Recovered/Resolved]

NARRATIVE: CASE EVENT DATE: 20210101
